FAERS Safety Report 4757364-9 (Version None)
Quarter: 2005Q3

REPORT INFORMATION
  Report Type: 
  Country: None (occurrence: None)
  Receive Date: 20050831
  Receipt Date: 20050824
  Transmission Date: 20060218
  Serious: Yes (Life-Threatening, Hospitalization)
  Sender: FDA-Public Use
  Company Number: JP-JNJFOC-20050803539

PATIENT
  Sex: Female

DRUGS (12)
  1. OXYBUTYNIN HYDROCHLORIDE [Suspect]
     Indication: NEUROGENIC BLADDER
     Dosage: 17 DAYS
     Route: 048
  2. RENIVACE [Suspect]
     Indication: HYPERTENSION
     Route: 048
  3. NORVASC [Suspect]
     Indication: HYPERTENSION
     Route: 048
  4. GASTER D [Suspect]
     Indication: GASTRITIS
     Route: 048
  5. OPALMON [Concomitant]
     Route: 048
  6. LASIX [Concomitant]
     Dosage: 1/2 TABLET/DAY INITIATED ON 17-AUG-2005
     Route: 048
  7. LASIX [Concomitant]
     Dosage: 1/2 TABLET/DAY
     Route: 048
  8. GLUCONSAN K [Concomitant]
  9. MARZULENE S [Concomitant]
  10. MARZULENE S [Concomitant]
  11. MUCODYNE [Concomitant]
  12. LANIRAPID [Concomitant]

REACTIONS (1)
  - THROMBOCYTOPENIA [None]
